FAERS Safety Report 12853284 (Version 2)
Quarter: 2021Q1

REPORT INFORMATION
  Report Type: Spontaneous
  Country: US (occurrence: US)
  Receive Date: 20161017
  Receipt Date: 20210223
  Transmission Date: 20210419
  Serious: No
  Sender: FDA-Public Use
  Company Number: US-JAZZ-2016-US-014163

PATIENT
  Sex: Male

DRUGS (26)
  1. XYREM [Suspect]
     Active Substance: SODIUM OXYBATE
     Indication: CATAPLEXY
     Dosage: 4.5 G, BID
     Route: 048
     Dates: start: 201302
  2. LOVAZA [Concomitant]
     Active Substance: OMEGA-3-ACID ETHYL ESTERS
  3. ZIAGEN [Concomitant]
     Active Substance: ABACAVIR SULFATE
  4. AMBIEN CR [Concomitant]
     Active Substance: ZOLPIDEM TARTRATE
  5. OXYCODONE HYDROCHLORIDE. [Concomitant]
     Active Substance: OXYCODONE HYDROCHLORIDE
  6. VIAGRA [Concomitant]
     Active Substance: SILDENAFIL CITRATE
  7. SEROQUEL XR [Concomitant]
     Active Substance: QUETIAPINE FUMARATE
  8. ZENZEDI [Concomitant]
     Active Substance: DEXTROAMPHETAMINE SULFATE
  9. VIREAD [Concomitant]
     Active Substance: TENOFOVIR DISOPROXIL FUMARATE
  10. BUPROPION HCL [Concomitant]
     Active Substance: BUPROPION HYDROCHLORIDE
  11. MECLIZINE HCL [Concomitant]
     Active Substance: MECLIZINE HYDROCHLORIDE
  12. TESTOSTERONE CYPIONATE. [Concomitant]
     Active Substance: TESTOSTERONE CYPIONATE
  13. DEXEDRINE [Concomitant]
     Active Substance: DEXTROAMPHETAMINE SULFATE
  14. TRUSOPT [Concomitant]
     Active Substance: DORZOLAMIDE HYDROCHLORIDE
  15. ADDERALL [Concomitant]
     Active Substance: AMPHETAMINE ASPARTATE\AMPHETAMINE SULFATE\DEXTROAMPHETAMINE SACCHARATE\DEXTROAMPHETAMINE SULFATE
  16. AMBIEN [Concomitant]
     Active Substance: ZOLPIDEM TARTRATE
  17. NORVIR [Concomitant]
     Active Substance: RITONAVIR
  18. PERCOCET [Concomitant]
     Active Substance: ACETAMINOPHEN\OXYCODONE HYDROCHLORIDE
  19. REYATAZ [Concomitant]
     Active Substance: ATAZANAVIR SULFATE
  20. KLONOPIN [Concomitant]
     Active Substance: CLONAZEPAM
  21. TRAVATAN Z [Concomitant]
     Active Substance: TRAVOPROST
  22. XYREM [Suspect]
     Active Substance: SODIUM OXYBATE
     Indication: NARCOLEPSY
     Dosage: 2.25 G, BID
     Route: 048
     Dates: start: 201301, end: 201302
  23. ALPHAGAN P [Concomitant]
     Active Substance: BRIMONIDINE TARTRATE
  24. NEXIUM I.V. [Concomitant]
     Active Substance: ESOMEPRAZOLE SODIUM
  25. RESTASIS [Concomitant]
     Active Substance: CYCLOSPORINE
  26. GABAPENTIN. [Concomitant]
     Active Substance: GABAPENTIN

REACTIONS (4)
  - Sexual dysfunction [Unknown]
  - Insomnia [Unknown]
  - Depression [Unknown]
  - Drug ineffective [Unknown]
